FAERS Safety Report 10409327 (Version 2)
Quarter: 2015Q3

REPORT INFORMATION
  Report Type: Spontaneous
  Country: DK (occurrence: DK)
  Receive Date: 20140826
  Receipt Date: 20150831
  Transmission Date: 20151125
  Serious: Yes (Life-Threatening, Hospitalization, Other)
  Sender: FDA-Public Use
  Company Number: DK-PFIZER INC-2014233546

PATIENT
  Age: 42 Year
  Sex: Female

DRUGS (4)
  1. DALACIN [Suspect]
     Active Substance: CLINDAMYCIN\CLINDAMYCIN PHOSPHATE
     Indication: DENTAL CARE
     Dosage: 300 MG, UNK
     Route: 048
     Dates: start: 20140626, end: 20140626
  2. VEPICOMBIN NOVUM [Suspect]
     Active Substance: PENICILLIN V POTASSIUM
     Indication: DENTAL CARE
     Dosage: 1 MILLION IU; UNK
     Route: 048
     Dates: start: 20140612, end: 20140626
  3. MORFIN [Concomitant]
     Active Substance: MORPHINE SULFATE
     Indication: PAIN
     Dosage: 10 MG, UNK
     Route: 048
     Dates: start: 201406
  4. IBUMETIN [Concomitant]
     Active Substance: IBUPROFEN
     Indication: PAIN
     Dosage: 600 MG, UNK
     Route: 048
     Dates: start: 201406

REACTIONS (4)
  - Urticaria [Recovered/Resolved]
  - Angioedema [Recovered/Resolved]
  - Ear swelling [Recovered/Resolved]
  - Lip swelling [Recovered/Resolved]

NARRATIVE: CASE EVENT DATE: 20140626
